FAERS Safety Report 20876694 (Version 1)
Quarter: 2022Q2

REPORT INFORMATION
  Report Type: Spontaneous
  Country: US (occurrence: US)
  Receive Date: 20220526
  Receipt Date: 20220526
  Transmission Date: 20220721
  Serious: No
  Sender: FDA-Public Use
  Company Number: US-JNJFOC-20220547618

PATIENT
  Age: 31 Year
  Sex: Male

DRUGS (1)
  1. MENS ROGAINE EXTRA STRENGTH [Suspect]
     Active Substance: MINOXIDIL
     Indication: Alopecia
     Dosage: DOSE: 1 DROPPER TWICE A DAY
     Route: 061
     Dates: start: 20220519

REACTIONS (1)
  - Seborrhoea [Recovered/Resolved]

NARRATIVE: CASE EVENT DATE: 20220519
